FAERS Safety Report 4351262-0 (Version None)
Quarter: 2004Q2

REPORT INFORMATION
  Report Type: 
  Country: None (occurrence: None)
  Receive Date: 20040430
  Receipt Date: 20040430
  Transmission Date: 20050107
  Serious: Yes (Hospitalization)
  Sender: FDA-Public Use
  Company Number: None

PATIENT
  Age: 68 Year
  Sex: Male
  Weight: 110 kg

DRUGS (1)
  1. CAPECITABINE [Suspect]
     Indication: COLON CANCER
     Dosage: 3500 MG BID

REACTIONS (4)
  - ONYCHOMADESIS [None]
  - PURULENT DISCHARGE [None]
  - SKIN FISSURES [None]
  - SKIN ULCER [None]
